FAERS Safety Report 13160719 (Version 2)
Quarter: 2017Q2

REPORT INFORMATION
  Report Type: Report from Study
  Country: GB (occurrence: GB)
  Receive Date: 20170129
  Receipt Date: 20170503
  Transmission Date: 20170830
  Serious: Yes (Other)
  Sender: FDA-Public Use
  Company Number: GB-BEH-2015055896

PATIENT
  Age: 74 Year
  Sex: Male
  Weight: 79.5 kg

DRUGS (1)
  1. RIASTAP [Suspect]
     Active Substance: FIBRINOGEN HUMAN
     Indication: COAGULATION FACTOR DEFICIENCY
     Dosage: GIVEN AS VARIABLE RATE INFUSION DURING SURGERY; USED WITHIN EXPIRY DATE
     Route: 042
     Dates: start: 20121204, end: 20121204

REACTIONS (5)
  - Arrhythmia [Unknown]
  - Atrial fibrillation [Unknown]
  - Mechanical ventilation [Recovered/Resolved]
  - Ventricular fibrillation [Unknown]
  - Myocardial infarction [Recovered/Resolved]

NARRATIVE: CASE EVENT DATE: 201212
